FAERS Safety Report 19389423 (Version 2)
Quarter: 2021Q3

REPORT INFORMATION
  Report Type: Spontaneous
  Country: GB (occurrence: GB)
  Receive Date: 20210608
  Receipt Date: 20210707
  Transmission Date: 20211014
  Serious: Yes (Death, Hospitalization, Other)
  Sender: FDA-Public Use
  Company Number: GB-ACCORD-227490

PATIENT
  Age: 5 Year
  Sex: Male
  Weight: 107 kg

DRUGS (6)
  1. CISPLATIN. [Suspect]
     Active Substance: CISPLATIN
     Indication: BRAIN CANCER METASTATIC
     Dosage: UNK, CYCLIC (TWO ROUNDS OF CHEMOTHERAPY)
     Dates: start: 201911, end: 20191216
  2. VEPESID [Suspect]
     Active Substance: ETOPOSIDE
     Indication: NEOPLASM MALIGNANT
     Dosage: UNK, CYCLIC (TWO ROUNDS OF CHEMOTHERAPY)
  3. CARBOPLATIN. [Concomitant]
     Active Substance: CARBOPLATIN
  4. THIOTEPA. [Concomitant]
     Active Substance: THIOTEPA
  5. VINCRISTINE [Suspect]
     Active Substance: VINCRISTINE
     Indication: BRAIN CANCER METASTATIC
     Dosage: UNK, CYCLIC (TWO ROUNDS OF CHEMOTHERAPY)
     Dates: start: 201911, end: 20191216
  6. CYCLOPHOSPHAMIDE/CYCLOPHOSPHAMIDE MONOHYDRATE [Suspect]
     Active Substance: CYCLOPHOSPHAMIDE
     Indication: NEOPLASM MALIGNANT
     Dosage: UNK, CYCLIC (TWO ROUNDS OF CHEMOTHERAPY)

REACTIONS (16)
  - Illness [Fatal]
  - Neutropenic sepsis [Fatal]
  - Drug ineffective [Fatal]
  - Intestinal prolapse [Fatal]
  - Seizure [Fatal]
  - Acute kidney injury [Fatal]
  - Death [Fatal]
  - Headache [Fatal]
  - Abdominal discomfort [Fatal]
  - Pancytopenia [Fatal]
  - Diarrhoea [Fatal]
  - Mouth ulceration [Fatal]
  - Pain [Fatal]
  - Rectal prolapse [Fatal]
  - Feeding disorder [Fatal]
  - Haemorrhage intracranial [Fatal]

NARRATIVE: CASE EVENT DATE: 2019
